FAERS Safety Report 6095248-7 (Version None)
Quarter: 2009Q1

REPORT INFORMATION
  Report Type: 
  Country: None (occurrence: None)
  Receive Date: 20090227
  Receipt Date: 20080221
  Transmission Date: 20090719
  Serious: No
  Sender: FDA-Public Use
  Company Number: A0711020A

PATIENT
  Age: 42 Year
  Sex: Male

DRUGS (5)
  1. LAMICTAL [Suspect]
     Indication: BIPOLAR DISORDER
     Dosage: 100MG TWICE PER DAY
     Route: 048
     Dates: start: 20070801
  2. VYTORIN [Concomitant]
  3. LYRICA [Concomitant]
  4. CYMBALTA [Concomitant]
  5. CARBAMAZEPINE [Concomitant]

REACTIONS (1)
  - VISION BLURRED [None]
